FAERS Safety Report 17884827 (Version 2)
Quarter: 2020Q2

REPORT INFORMATION
  Report Type: Spontaneous
  Country: IT (occurrence: IT)
  Receive Date: 20200611
  Receipt Date: 20200630
  Transmission Date: 20200714
  Serious: Yes (Hospitalization, Other)
  Sender: FDA-Public Use
  Company Number: IT-BAYER-2020-106249

PATIENT
  Age: 69 Year
  Sex: Male
  Weight: 70 kg

DRUGS (4)
  1. STIVARGA [Suspect]
     Active Substance: REGORAFENIB
     Indication: GLIOBLASTOMA
     Dosage: 400 MG DAILY 1/21 DAYS
     Route: 048
     Dates: start: 20200330, end: 20200515
  2. TRIATEC [RAMIPRIL] [Concomitant]
     Active Substance: RAMIPRIL
  3. INSULIN [Concomitant]
     Active Substance: INSULIN NOS
  4. PANTORC [Concomitant]
     Active Substance: PANTOPRAZOLE SODIUM

REACTIONS (6)
  - Off label use [None]
  - Interstitial lung disease [None]
  - Pulmonary oedema [Not Recovered/Not Resolved]
  - Pulmonary embolism [Not Recovered/Not Resolved]
  - Oedema peripheral [None]
  - Product use in unapproved indication [None]

NARRATIVE: CASE EVENT DATE: 20200331
